FAERS Safety Report 6057029-X (Version None)
Quarter: 2009Q1

REPORT INFORMATION
  Report Type: 
  Country: None (occurrence: None)
  Receive Date: 20090129
  Receipt Date: 20090121
  Transmission Date: 20090719
  Serious: Yes (Hospitalization)
  Sender: FDA-Public Use
  Company Number: IL-AMGEN-US330635

PATIENT
  Age: 78 Year
  Sex: Female

DRUGS (3)
  1. ENBREL [Suspect]
     Indication: RHEUMATOID ARTHRITIS
     Route: 058
     Dates: start: 20040101
  2. PREDNISONE [Concomitant]
     Route: 065
  3. UNSPECIFIED OPHTHALMIC PREPARATION [Concomitant]
     Route: 047

REACTIONS (5)
  - CATARACT [None]
  - CORNEAL INFECTION [None]
  - DRY EYE [None]
  - HIP ARTHROPLASTY [None]
  - KNEE ARTHROPLASTY [None]
